FAERS Safety Report 18481762 (Version 1)
Quarter: 2020Q4

REPORT INFORMATION
  Report Type: Spontaneous
  Country: NL (occurrence: NL)
  Receive Date: 20201109
  Receipt Date: 20201109
  Transmission Date: 20210114
  Serious: Yes (Other)
  Sender: FDA-Public Use
  Company Number: NL-NANJING KING-FRIEND BIOCHEMICAL PHARMACEUTICAL CO. LTD.-2020NKF00056

PATIENT
  Age: 65 Year
  Sex: Male

DRUGS (2)
  1. HEPARIN [Suspect]
     Active Substance: HEPARIN SODIUM
     Indication: CORONARY ARTERY BYPASS
     Dosage: 3000 U, ONCE
     Route: 065
  2. HEPARIN [Suspect]
     Active Substance: HEPARIN SODIUM
     Dosage: 19500 U, ON PUMP CABG
     Route: 065

REACTIONS (4)
  - Heparin-induced thrombocytopenia [Recovered/Resolved]
  - Aortic thrombosis [Recovered/Resolved]
  - Thrombosis [Recovered/Resolved]
  - Pneumatosis intestinalis [Recovered/Resolved]
